FAERS Safety Report 9151920 (Version 1)
Quarter: 2013Q1

REPORT INFORMATION
  Report Type: Spontaneous
  Country: US (occurrence: US)
  Receive Date: 20130308
  Receipt Date: 20130308
  Transmission Date: 20140127
  Serious: No
  Sender: FDA-Public Use
  Company Number: US-GLAXOSMITHKLINE-A1001191A

PATIENT
  Age: 60 Year
  Sex: Female

DRUGS (2)
  1. NICORETTE [Suspect]
     Indication: EX-TOBACCO USER
     Dates: start: 20121114, end: 20121114
  2. NICORETTE [Suspect]
     Indication: EX-TOBACCO USER
     Dates: end: 20121114

REACTIONS (7)
  - Glossodynia [Not Recovered/Not Resolved]
  - Drug ineffective [Unknown]
  - Paraesthesia oral [Recovered/Resolved]
  - Glossodynia [Recovered/Resolved]
  - Glossodynia [Not Recovered/Not Resolved]
  - Poor quality sleep [Recovered/Resolved]
  - Drug administration error [Unknown]
